FAERS Safety Report 8388724-5 (Version None)
Quarter: 2012Q2

REPORT INFORMATION
  Report Type: 
  Country: None (occurrence: None)
  Receive Date: 20120527
  Receipt Date: 20120522
  Transmission Date: 20120825
  Serious: Yes (Life-Threatening, Hospitalization)
  Sender: FDA-Public Use
  Company Number: DE-AMGEN-DEUCT2012029413

PATIENT
  Age: 69 Year
  Sex: Male

DRUGS (6)
  1. ASPIRIN [Concomitant]
     Dosage: 100 MG, UNK
     Dates: start: 20120426, end: 20120508
  2. PANITUMUMAB [Suspect]
     Indication: NON-SMALL CELL LUNG CANCER
     Dosage: 9.0 MG/KG, UNK
     Route: 042
     Dates: start: 20120405, end: 20120426
  3. POTASSIUM CHLORIDE [Concomitant]
     Dosage: UNK
     Dates: start: 20100426, end: 20120508
  4. OXYGEN [Concomitant]
  5. PEMETREXED [Concomitant]
     Indication: NON-SMALL CELL LUNG CANCER
     Dosage: 500 MG/M2, UNK
     Route: 042
     Dates: start: 20120405, end: 20120426
  6. CISPLATIN [Concomitant]
     Indication: NON-SMALL CELL LUNG CANCER
     Dosage: 75 MG/M2, UNK
     Route: 042
     Dates: start: 20120405, end: 20120426

REACTIONS (1)
  - HAEMATOTOXICITY [None]
